FAERS Safety Report 12145226 (Version 5)
Quarter: 2016Q2

REPORT INFORMATION
  Report Type: Report from Study
  Country: GB (occurrence: GB)
  Receive Date: 20160304
  Receipt Date: 20160607
  Transmission Date: 20160815
  Serious: Yes (Hospitalization, Other)
  Sender: FDA-Public Use
  Company Number: PHFR2016GB001920

PATIENT
  Age: 47 Year
  Sex: Female

DRUGS (20)
  1. TAMIFLU [Concomitant]
     Active Substance: OSELTAMIVIR PHOSPHATE
     Indication: PROPHYLAXIS
     Dosage: 75 MG, UNK
     Route: 048
     Dates: start: 20160226, end: 20160228
  2. EXEMESTANE. [Concomitant]
     Active Substance: EXEMESTANE
     Indication: BREAST CANCER METASTATIC
     Dosage: 25 MG, UNK
     Route: 048
     Dates: start: 20140725
  3. PARACETAMOL [Concomitant]
     Active Substance: ACETAMINOPHEN
     Indication: PYREXIA
     Dosage: 1 G, QDS
     Route: 048
     Dates: start: 20160224, end: 20160225
  4. NOVORAPID [Concomitant]
     Active Substance: INSULIN ASPART
     Indication: BLOOD GLUCOSE INCREASED
     Dosage: 6 DF, PRN
     Route: 058
     Dates: start: 20160410, end: 20160412
  5. FLUCONAZOLE. [Concomitant]
     Active Substance: FLUCONAZOLE
     Indication: ORAL CANDIDIASIS
     Dosage: 50 MG, QD
     Route: 048
     Dates: start: 20160209, end: 20160218
  6. DALTEPARIN [Concomitant]
     Active Substance: DALTEPARIN
     Indication: DEEP VEIN THROMBOSIS
     Dosage: 12000 UNITS, QD
     Route: 058
     Dates: start: 20160405
  7. SANDO K [Concomitant]
     Indication: BLOOD POTASSIUM DECREASED
     Dosage: 24 MMOL, TID
     Route: 048
     Dates: start: 20160404, end: 20160407
  8. PROBIOTIC                          /07343501/ [Concomitant]
     Active Substance: BIFIDOBACTERIUM LONGUM\LACTOBACILLUS ACIDOPHILUS
     Indication: SUPPLEMENTATION THERAPY
     Dosage: 1 SACKET, QD
     Route: 048
     Dates: start: 20160407, end: 20160408
  9. NOVORAPID [Concomitant]
     Active Substance: INSULIN ASPART
     Dosage: 4 DF, PRN
     Route: 058
     Dates: start: 20160411, end: 20160413
  10. LANTUS [Concomitant]
     Active Substance: INSULIN GLARGINE
     Indication: BLOOD GLUCOSE INCREASED
     Dosage: 4 DF, UNK
     Route: 058
     Dates: start: 20160410, end: 20160411
  11. LANTUS [Concomitant]
     Active Substance: INSULIN GLARGINE
     Dosage: 2 UNITS, PRN
     Route: 058
     Dates: start: 20160411, end: 20160411
  12. LANTUS [Concomitant]
     Active Substance: INSULIN GLARGINE
     Dosage: 4 DF, PRN
     Route: 058
     Dates: start: 20160411, end: 20160413
  13. AFINITOR [Suspect]
     Active Substance: EVEROLIMUS
     Indication: BREAST CANCER METASTATIC
     Dosage: 10 MG, UNK
     Route: 048
     Dates: start: 20150630
  14. NYSTATIN. [Concomitant]
     Active Substance: NYSTATIN
     Indication: ORAL CANDIDIASIS
     Dosage: 1 ML, QDS
     Route: 048
     Dates: start: 20160209, end: 20160211
  15. MORPHINE SULPHATE [Concomitant]
     Active Substance: MORPHINE SULFATE
     Indication: PAIN
     Dosage: 5 MG, PRN
     Route: 048
     Dates: start: 20160404
  16. MORPHINE SULPHATE [Concomitant]
     Active Substance: MORPHINE SULFATE
     Dosage: 10 MG, ONCE/SINGLE
     Route: 048
     Dates: start: 20160405, end: 20160405
  17. GLICLAZIDE [Concomitant]
     Active Substance: GLICLAZIDE
     Indication: BLOOD GLUCOSE INCREASED
     Dosage: 160 MG, PRN
     Route: 048
     Dates: start: 20160414
  18. OMEPRAZOLE. [Concomitant]
     Active Substance: OMEPRAZOLE
     Indication: REFLUX GASTRITIS
     Dosage: 20 MG, QD
     Route: 048
  19. OSELTAMIVIR [Concomitant]
     Active Substance: OSELTAMIVIR
     Indication: ANTIVIRAL PROPHYLAXIS
     Dosage: 75 MG, ONCE/SINGLE
     Dates: start: 20160226, end: 20160226
  20. PARACETAMOL [Concomitant]
     Active Substance: ACETAMINOPHEN
     Indication: PAIN
     Dosage: 1 G, ONCE/SINGLE FOR PAIN
     Route: 048
     Dates: start: 20160405

REACTIONS (15)
  - Wheezing [Recovered/Resolved with Sequelae]
  - Dyspnoea [Recovered/Resolved with Sequelae]
  - Flank pain [Recovered/Resolved with Sequelae]
  - Chest pain [Recovered/Resolved with Sequelae]
  - Lower respiratory tract infection [Recovered/Resolved]
  - Metastases to central nervous system [Not Recovered/Not Resolved]
  - Tachycardia [Recovered/Resolved]
  - Pneumothorax [Recovered/Resolved with Sequelae]
  - Oxygen saturation decreased [Recovered/Resolved]
  - Seizure [Recovering/Resolving]
  - Dyspnoea [Recovered/Resolved]
  - Brain oedema [Recovering/Resolving]
  - Pneumonia [Recovered/Resolved]
  - Malaise [Recovering/Resolving]
  - Lung infection [Recovered/Resolved]

NARRATIVE: CASE EVENT DATE: 20160111
